FAERS Safety Report 8122435-6 (Version None)
Quarter: 2012Q1

REPORT INFORMATION
  Report Type: 
  Country: None (occurrence: None)
  Receive Date: 20120206
  Receipt Date: 20120123
  Transmission Date: 20120608
  Serious: Yes (Hospitalization, Other)
  Sender: FDA-Public Use
  Company Number: JPI-P-014152

PATIENT
  Age: 61 Year
  Sex: Male
  Weight: 178 kg

DRUGS (33)
  1. DICLOFENAC SODIUM [Suspect]
     Indication: PAIN
     Dates: end: 20111024
  2. DICLOFENAC SODIUM [Suspect]
     Indication: OSTEOARTHRITIS
     Dates: end: 20111024
  3. VITAMIN E [Concomitant]
  4. ACYCLOVIR [Concomitant]
  5. REVLIMID [Concomitant]
  6. LEVOTHYROXINE SODIUM [Concomitant]
  7. VITAMIN D [Concomitant]
  8. ASPIRIN [Concomitant]
  9. TESTOSTERONE (ANDROGEL) [Concomitant]
  10. FUROSEMIDE [Suspect]
     Indication: RENAL FAILURE ACUTE
     Dosage: (DOSAGE FORMS, 2 IN 1 D), INTRAVENOUS
     Route: 042
     Dates: start: 20111001
  11. FUROSEMIDE [Suspect]
     Indication: HYPERCALCAEMIA
     Dosage: (DOSAGE FORMS, 2 IN 1 D), INTRAVENOUS
     Route: 042
     Dates: start: 20111001
  12. FLUOXETINE HYDROCHLORIDE [Concomitant]
  13. ARMODAFINIL [Concomitant]
  14. NEBIVOLOL HYDROCHLORIDE (BYSTOLIC) [Concomitant]
  15. CALCIUM [Suspect]
     Indication: PRODUCT USED FOR UNKNOWN INDICATION
     Dosage: 1800 MG (1800 MG, 1 IN 1 D)
     Dates: end: 20111024
  16. FLUID HYDRATION [Suspect]
     Indication: HYPERCALCAEMIA
     Dates: start: 20111001
  17. FLUID HYDRATION [Suspect]
     Indication: RENAL FAILURE ACUTE
     Dates: start: 20111001
  18. AMLODIPINE [Concomitant]
  19. SIMVASTATIN [Concomitant]
  20. XYREM [Suspect]
     Indication: CATAPLEXY
     Dosage: SEE IMAGE
     Route: 048
     Dates: start: 20050509, end: 20111023
  21. XYREM [Suspect]
     Indication: CATAPLEXY
     Dosage: SEE IMAGE
     Route: 048
     Dates: start: 20120122
  22. XYREM [Suspect]
     Indication: CATAPLEXY
     Dosage: SEE IMAGE
     Route: 048
     Dates: start: 20050418, end: 20050508
  23. XYREM [Suspect]
     Indication: CATAPLEXY
     Dosage: SEE IMAGE
     Route: 048
     Dates: start: 20111107, end: 20111108
  24. VALSARTAN [Suspect]
     Indication: HYPERTENSION
     Dates: end: 20111024
  25. GLUCOSAMINE CHONDROITIN [Concomitant]
  26. CIPROFLOXACIN [Concomitant]
  27. ROSUVASTATIN CALCIUM (CRESTOR) [Concomitant]
  28. GABAPENTIN [Concomitant]
  29. DAPSONE [Concomitant]
  30. TAMSULOSIN HYDROCHLORIDE (FLOMAX) [Concomitant]
  31. NEUPOGEN [Concomitant]
  32. TAPENTADOL HYDROCHLORIDE (NUCYNTA) [Concomitant]
  33. FLEXERIL [Concomitant]

REACTIONS (15)
  - MULTIPLE MYELOMA [None]
  - ABASIA [None]
  - FALL [None]
  - WEIGHT DECREASED [None]
  - HYPERCALCAEMIA [None]
  - HEAD INJURY [None]
  - POLLAKIURIA [None]
  - MICTURITION URGENCY [None]
  - RENAL FAILURE ACUTE [None]
  - HYPOTENSION [None]
  - CONDITION AGGRAVATED [None]
  - CONFUSIONAL STATE [None]
  - CARDIAC FAILURE CONGESTIVE [None]
  - SOMNOLENCE [None]
  - CONFABULATION [None]
